APPROVED DRUG PRODUCT: BUPROPION HYDROCHLORIDE
Active Ingredient: BUPROPION HYDROCHLORIDE
Strength: 200MG
Dosage Form/Route: TABLET, EXTENDED RELEASE;ORAL
Application: A078866 | Product #003
Applicant: SUN PHARMACEUTICAL INDUSTRIES LTD
Approved: Apr 6, 2010 | RLD: No | RS: No | Type: DISCN